FAERS Safety Report 8588241-3 (Version None)
Quarter: 2012Q3

REPORT INFORMATION
  Report Type: 
  Country: None (occurrence: None)
  Receive Date: 20120813
  Receipt Date: 20120807
  Transmission Date: 20120928
  Serious: Yes (Hospitalization, Disabling, Other)
  Sender: FDA-Public Use
  Company Number: CA-AMGEN-CANSP2011040113

PATIENT
  Age: 50 Year
  Sex: Male

DRUGS (11)
  1. FLOMAX [Concomitant]
     Dosage: 0.4 MG, UNK
  2. ENBREL [Suspect]
     Dosage: 50 MG, 2 TIMES/WK
     Route: 058
  3. CICLOPIROX [Concomitant]
     Dosage: UNK
  4. CORTISONE ACETATE [Concomitant]
     Dosage: UNK
  5. HYDROXYZINE [Concomitant]
     Dosage: 25 MG, UNK
  6. CORTISONE ACETATE [Concomitant]
     Dosage: UNK
  7. ENBREL [Suspect]
     Indication: PSORIASIS
     Dosage: 50 MG, QWK
     Route: 058
     Dates: start: 20110609, end: 20110929
  8. AVALIDE [Concomitant]
     Dosage: 12.5 MG, UNK
  9. CRESTOR [Concomitant]
     Dosage: 5 MG, QD
  10. IBUPROFEN [Concomitant]
     Dosage: 800 MG, UNK
  11. BETAMETHASONE VALERATE [Concomitant]
     Dosage: UNK

REACTIONS (6)
  - ENCEPHALOPATHY [None]
  - BLOOD CHOLESTEROL INCREASED [None]
  - MIGRAINE [None]
  - DIZZINESS [None]
  - HYPERTENSION [None]
  - FATIGUE [None]
